FAERS Safety Report 10147137 (Version 3)
Quarter: 2014Q3

REPORT INFORMATION
  Report Type: Report from Study
  Country: CA (occurrence: CA)
  Receive Date: 20140501
  Receipt Date: 20140704
  Transmission Date: 20150326
  Serious: Yes (Other)
  Sender: FDA-Public Use
  Company Number: PHHY2014CA053004

PATIENT
  Sex: Female

DRUGS (15)
  1. ACLASTA [Suspect]
     Active Substance: ZOLEDRONIC ACID
     Dosage: 5 MG, (ONCE ANNUALLY)
     Route: 042
     Dates: start: 20140510
  2. XALACOM [Concomitant]
     Active Substance: LATANOPROST\TIMOLOL MALEATE
     Dosage: 1 DRP, QD (AT BEDTIME IN AFFECTED EYE)
     Dates: start: 20140625
  3. AMOXICILLIN. [Concomitant]
     Active Substance: AMOXICILLIN
     Dosage: 1 DF, TID
     Dates: start: 20130110
  4. ACLASTA [Suspect]
     Active Substance: ZOLEDRONIC ACID
     Indication: OSTEOPOROSIS
     Dosage: 5 MG, (ONCE ANNUALLY)
     Route: 042
     Dates: start: 2010
  5. DIOVAN [Concomitant]
     Active Substance: VALSARTAN
     Dosage: 80 MG, QD
     Dates: start: 20130110
  6. OS-CAL [Concomitant]
     Dosage: 1 DF, BID
  7. ALPHAGAN P [Concomitant]
     Active Substance: BRIMONIDINE TARTRATE
     Dosage: 1 DRP, BID (IN AFFECTED EYE)
     Dates: start: 20140517
  8. ACLASTA [Suspect]
     Active Substance: ZOLEDRONIC ACID
     Dosage: 5 MG, (ONCE ANNUALLY)
     Route: 042
     Dates: start: 20130525
  9. ENSURE [Concomitant]
     Active Substance: AMINO ACIDS\DEXTROSE\ELECTROLYTES NOS\SOYBEAN OIL\VITAMINS
     Dosage: 1 DF, QD
     Dates: start: 20140625
  10. ACLASTA [Suspect]
     Active Substance: ZOLEDRONIC ACID
     Dosage: 5 MG, (ONCE ANNUALLY)
     Route: 042
     Dates: start: 20120515
  11. APO-CLORAZEPATE [Concomitant]
     Dosage: 1 DF, QD (AT BEDTIME AS NEEDED)
     Dates: start: 20140625
  12. ALPHAGAN P [Concomitant]
     Active Substance: BRIMONIDINE TARTRATE
     Dosage: 1 DRP, BID (IN AFFECTED EYE)
     Dates: start: 20140625
  13. COUMADINE [Concomitant]
     Active Substance: WARFARIN SODIUM
     Dosage: 2 DF ON MONDAY, WEDNESDAY AND FRIDAY AND 1 DF EVERY OTHER DAY
     Dates: start: 20140625
  14. CALCIUM +VIT D [Concomitant]
     Active Substance: CALCIUM\VITAMIN D
     Dosage: 1 DF, BID (DURING MEAL) (1 CAPSULE : 500MG +400IU)
  15. FLUVIRAL [Concomitant]
     Active Substance: INFLUENZA VIRUS VACCINE
     Dosage: UNK UKN, UNK
     Dates: start: 20121106

REACTIONS (6)
  - Aortic arteriosclerosis [Unknown]
  - Catheter site pain [Recovered/Resolved]
  - Colon cancer [Recovered/Resolved]
  - Pulmonary embolism [Unknown]
  - Catheter site oedema [Recovered/Resolved]
  - Diverticulum intestinal [Unknown]
